FAERS Safety Report 22044342 (Version 1)
Quarter: 2023Q1

REPORT INFORMATION
  Report Type: Report from Study
  Country: KR (occurrence: KR)
  Receive Date: 20230228
  Receipt Date: 20230228
  Transmission Date: 20230418
  Serious: Yes (Hospitalization, Other)
  Sender: FDA-Public Use
  Company Number: KR-GLAXOSMITHKLINE-KR2023GSK030677

PATIENT

DRUGS (10)
  1. FLUTICASONE FUROATE\UMECLIDINIUM BROMIDE\VILANTEROL TRIFENATATE [Suspect]
     Active Substance: FLUTICASONE FUROATE\UMECLIDINIUM BROMIDE\VILANTEROL TRIFENATATE
     Indication: Chronic obstructive pulmonary disease
     Dosage: UNK, QD
     Route: 055
     Dates: start: 20220316
  2. PREDNISOLONE [Concomitant]
     Active Substance: PREDNISOLONE
     Indication: Dyspnoea
     Dosage: 1 DF, QD
     Route: 048
     Dates: start: 20220907
  3. PREDNISOLONE [Concomitant]
     Active Substance: PREDNISOLONE
     Dosage: 1 DF, BID
     Route: 048
     Dates: start: 20151118
  4. PRANLUKAST [Concomitant]
     Active Substance: PRANLUKAST
     Indication: Chronic obstructive pulmonary disease
     Dosage: 112.5 MG, BID
     Route: 048
     Dates: start: 20140710
  5. DOXOFYLLINE [Concomitant]
     Active Substance: DOXOFYLLINE
     Indication: Chronic obstructive pulmonary disease
     Dosage: 1 DF, BID
     Route: 048
     Dates: start: 20140710
  6. AXID [Concomitant]
     Active Substance: NIZATIDINE
     Indication: Dyspepsia
     Dosage: 150 MG, BID
     Route: 048
     Dates: start: 20220907
  7. TWOTINECHOL [Concomitant]
     Indication: Benign prostatic hyperplasia
     Dosage: 1 DF, QD
     Route: 048
     Dates: start: 20211230
  8. ZYTIGA [Concomitant]
     Active Substance: ABIRATERONE ACETATE
     Indication: Prostate cancer
     Dosage: 2 DF, QD
     Route: 048
     Dates: start: 20210617
  9. ALFUZOSIN HYDROCHLORIDE [Concomitant]
     Active Substance: ALFUZOSIN HYDROCHLORIDE
     Indication: Benign prostatic hyperplasia
     Dosage: 1 DF, QD
     Route: 048
     Dates: start: 20171129
  10. HERBALS [Concomitant]
     Active Substance: HERBALS
     Indication: Dyspepsia
     Dosage: 1 DF, BID
     Route: 048
     Dates: start: 20140716

REACTIONS (1)
  - Lung carcinoma cell type unspecified stage 0 [Recovering/Resolving]

NARRATIVE: CASE EVENT DATE: 20230215
